FAERS Safety Report 5503606-1 (Version None)
Quarter: 2007Q4

REPORT INFORMATION
  Report Type: 
  Country: None (occurrence: None)
  Receive Date: 20071029
  Receipt Date: 20071017
  Transmission Date: 20080405
  Serious: Yes (Death, Hospitalization)
  Sender: FDA-Public Use
  Company Number: 2007-03433

PATIENT
  Age: 40 Year
  Sex: Male
  Weight: 82 kg

DRUGS (2)
  1. VELCADE [Suspect]
     Indication: MULTIPLE MYELOMA
     Dosage: 1.30 MG/M2,
     Dates: start: 20060714, end: 20060925
  2. DEXAMETHASONE [Suspect]
     Indication: MULTIPLE MYELOMA
     Dosage: 40.00 MG,
     Dates: start: 20060714, end: 20060918

REACTIONS (2)
  - CARDIAC AMYLOIDOSIS [None]
  - CARDIO-RESPIRATORY ARREST [None]
